FAERS Safety Report 22204741 (Version 2)
Quarter: 2023Q2

REPORT INFORMATION
  Report Type: Report from Study
  Country: US (occurrence: US)
  Receive Date: 20230413
  Receipt Date: 20230417
  Transmission Date: 20230721
  Serious: No
  Sender: FDA-Public Use
  Company Number: US-RECORDATI-2023002073

PATIENT
  Age: 35 Year
  Sex: Female

DRUGS (4)
  1. ISTURISA [Suspect]
     Active Substance: OSILODROSTAT PHOSPHATE
     Indication: Pituitary-dependent Cushing^s syndrome
     Dosage: 2 MG, QD (1MG TABLET, 2 TABLETS AT BEDTIME)
     Route: 065
     Dates: start: 202303
  2. ISTURISA [Suspect]
     Active Substance: OSILODROSTAT PHOSPHATE
     Dosage: 2 MG, QD (1MG TABLET, 2 TABLETS AT BEDTIME)
     Route: 065
     Dates: end: 202303
  3. KETOCONAZOLE [Suspect]
     Active Substance: KETOCONAZOLE
     Indication: Pituitary-dependent Cushing^s syndrome
     Dosage: UNK
     Route: 065
     Dates: start: 202303
  4. KETOCONAZOLE [Suspect]
     Active Substance: KETOCONAZOLE
     Dosage: UNK
     Route: 065
     Dates: end: 202303

REACTIONS (5)
  - COVID-19 [Unknown]
  - Somnolence [Unknown]
  - Fatigue [Unknown]
  - Headache [Unknown]
  - Off label use [Recovered/Resolved]

NARRATIVE: CASE EVENT DATE: 20230301
